FAERS Safety Report 22116090 (Version 3)
Quarter: 2023Q2

REPORT INFORMATION
  Report Type: Spontaneous
  Country: US (occurrence: US)
  Receive Date: 20230320
  Receipt Date: 20230530
  Transmission Date: 20230722
  Serious: No
  Sender: FDA-Public Use
  Company Number: US-VERTEX PHARMACEUTICALS-2020-017416

PATIENT
  Age: 67 Year
  Sex: Female
  Weight: 81 kg

DRUGS (20)
  1. TRIKAFTA [Suspect]
     Active Substance: ELEXACAFTOR\IVACAFTOR\TEZACAFTOR
     Indication: Cystic fibrosis
     Dosage: FULL DOSE
     Route: 048
     Dates: start: 20191107
  2. TRIKAFTA [Suspect]
     Active Substance: ELEXACAFTOR\IVACAFTOR\TEZACAFTOR
     Dosage: FLIPPED AM AND PM DOSE- ONE BLUE TABLET IN THE MORNING AND TWO ORANGE TABLETS IN THE EVENING
     Route: 048
     Dates: start: 20210609
  3. ALBUTEROL [Concomitant]
     Active Substance: ALBUTEROL
  4. NORVASC [Concomitant]
     Active Substance: AMLODIPINE BESYLATE
     Dosage: 10MG
  5. ASPIRIN [Concomitant]
     Active Substance: ASPIRIN
  6. CAYSTON [Concomitant]
     Active Substance: AZTREONAM
  7. AZITHROMYCIN [Concomitant]
     Active Substance: AZITHROMYCIN
  8. SYMBICORT [Concomitant]
     Active Substance: BUDESONIDE\FORMOTEROL FUMARATE DIHYDRATE
  9. CLONAZEPAM [Concomitant]
     Active Substance: CLONAZEPAM
  10. PULMOZYME [Concomitant]
     Active Substance: DORNASE ALFA
  11. FLONASE [Concomitant]
     Active Substance: FLUTICASONE PROPIONATE
  12. ZENPEP [Concomitant]
     Active Substance: PANCRELIPASE AMYLASE\PANCRELIPASE LIPASE\PANCRELIPASE PROTEASE
  13. HYDROCHLOROTHIAZIDE [Concomitant]
     Active Substance: HYDROCHLOROTHIAZIDE
  14. NOVOLOG [Concomitant]
     Active Substance: INSULIN ASPART
  15. TRAZODONE [Concomitant]
     Active Substance: TRAZODONE HYDROCHLORIDE
     Dosage: UNK
     Dates: end: 2020
  16. LANTUS [Concomitant]
     Active Substance: INSULIN GLARGINE
  17. LORATADINE [Concomitant]
     Active Substance: LORATADINE
  18. OMEPRAZOLE [Concomitant]
     Active Substance: OMEPRAZOLE
  19. PRAVASTATIN [Concomitant]
     Active Substance: PRAVASTATIN
  20. SPIRIVA [Concomitant]
     Active Substance: TIOTROPIUM BROMIDE MONOHYDRATE

REACTIONS (3)
  - Fatigue [Recovered/Resolved]
  - Energy increased [Recovered/Resolved]
  - Insomnia [Recovered/Resolved]

NARRATIVE: CASE EVENT DATE: 20200801
